FAERS Safety Report 9323824 (Version 1)
Quarter: 2013Q2

REPORT INFORMATION
  Report Type: Report from Study
  Country: IE (occurrence: IE)
  Receive Date: 20130603
  Receipt Date: 20130603
  Transmission Date: 20140414
  Serious: Yes (Other)
  Sender: FDA-Public Use
  Company Number: IE-ASTELLAS-2012EU006316

PATIENT
  Age: 63 Year
  Sex: Male
  Weight: 95 kg

DRUGS (4)
  1. VESITIRIM [Suspect]
     Indication: POLLAKIURIA
     Dosage: 5 MG, UID/QD
     Route: 048
     Dates: start: 20120604
  2. COMBODART [Concomitant]
     Indication: PROSTATOMEGALY
     Dosage: 5 MG, UNKNOWN/D
     Route: 048
  3. LEXAPRO [Concomitant]
     Indication: ANXIETY
     Dosage: 10 MG, UNKNOWN/D
     Route: 048
  4. ALLOPURINOL [Concomitant]
     Indication: GOUT
     Dosage: 100 MG, UNKNOWN/D
     Route: 048

REACTIONS (2)
  - Hypertension [Not Recovered/Not Resolved]
  - Haematuria [Unknown]
